FAERS Safety Report 25294701 (Version 1)
Quarter: 2025Q2

REPORT INFORMATION
  Report Type: Spontaneous
  Country: US (occurrence: US)
  Receive Date: 20250511
  Receipt Date: 20250511
  Transmission Date: 20250717
  Serious: No
  Sender: UCB
  Company Number: US-UCBSA-2024022647

PATIENT
  Sex: Female
  Weight: 73.923 kg

DRUGS (1)
  1. CIMZIA [Suspect]
     Active Substance: CERTOLIZUMAB PEGOL
     Indication: Rheumatoid arthritis
     Dosage: 200 MILLIGRAM, EV 2 WEEKS(QOW) AS DIRECTED
     Route: 058
     Dates: start: 202206

REACTIONS (4)
  - Illness [Unknown]
  - Productive cough [Unknown]
  - Cough [Unknown]
  - Needle issue [Unknown]
